FAERS Safety Report 23813058 (Version 2)
Quarter: 2025Q4

REPORT INFORMATION
  Report Type: Spontaneous
  Country: US (occurrence: US)
  Receive Date: 20240503
  Receipt Date: 20251225
  Transmission Date: 20260117
  Serious: Yes (Hospitalization, Other)
  Sender: AMNEAL
  Company Number: US-AMNEAL PHARMACEUTICALS-2023-AMRX-01686

PATIENT
  Sex: Male
  Weight: 45.397 kg

DRUGS (7)
  1. VIGABATRIN [Suspect]
     Active Substance: VIGABATRIN
     Indication: Infantile spasms
     Dosage: 1500MG IN AM AND 2000MG IN EVENING DAILY
     Route: 048
  2. VIGABATRIN [Suspect]
     Active Substance: VIGABATRIN
     Indication: Epilepsy
     Dosage: 3500 MILLIGRAM J-TUBE
     Route: 065
  3. VALIUM [Concomitant]
     Active Substance: DIAZEPAM
     Indication: Product used for unknown indication
     Dosage: 2 MG
     Route: 065
  4. VIGABATRIN [Concomitant]
     Active Substance: VIGABATRIN
     Indication: Product used for unknown indication
     Route: 065
  5. DEPAKOTE [Concomitant]
     Active Substance: DIVALPROEX SODIUM
     Indication: Product used for unknown indication
     Dosage: 125 MG
     Route: 065
  6. KEPPRA [Concomitant]
     Active Substance: LEVETIRACETAM
     Indication: Product used for unknown indication
     Dosage: 250 MG
     Route: 065
  7. CARNITOR [Concomitant]
     Active Substance: LEVOCARNITINE
     Indication: Product used for unknown indication
     Dosage: 330 MG
     Route: 065

REACTIONS (4)
  - Hypoxia [Unknown]
  - Seizure [Unknown]
  - Acute respiratory failure [Unknown]
  - Product dose omission issue [Unknown]
